FAERS Safety Report 10036535 (Version 2)
Quarter: 2014Q2

REPORT INFORMATION
  Report Type: Spontaneous
  Country: DE (occurrence: DE)
  Receive Date: 20140326
  Receipt Date: 20140418
  Transmission Date: 20141212
  Serious: Yes (Hospitalization, Other)
  Sender: FDA-Public Use
  Company Number: DE-AMGEN-DEUSP2014019804

PATIENT
  Age: 81 Year
  Sex: Male
  Weight: 92 kg

DRUGS (1)
  1. NPLATE [Suspect]
     Indication: IMMUNE THROMBOCYTOPENIC PURPURA
     Dosage: UNK UNK, QWK
     Route: 065
     Dates: start: 20131230, end: 201403

REACTIONS (10)
  - Rash [Unknown]
  - Pruritus [Unknown]
  - Platelet count abnormal [Unknown]
  - Therapeutic response decreased [Unknown]
  - Normochromic normocytic anaemia [Unknown]
  - Epistaxis [Recovered/Resolved]
  - Benign prostatic hyperplasia [Unknown]
  - Hypertension [Unknown]
  - Obesity [Unknown]
  - Hypersensitivity [Unknown]
